FAERS Safety Report 5165891-8 (Version None)
Quarter: 2006Q4

REPORT INFORMATION
  Report Type: 
  Country: None (occurrence: None)
  Receive Date: 20061128
  Receipt Date: 20061121
  Transmission Date: 20070319
  Serious: Yes (Death)
  Sender: FDA-Public Use
  Company Number: 229305

PATIENT
  Age: 89 Year
  Sex: Female

DRUGS (13)
  1. RANIBIZUMAB [Suspect]
     Indication: MACULAR DEGENERATION
     Dosage: INTRAVITREAL
     Dates: start: 20051213
  2. LEVOXYL [Concomitant]
  3. DIGOXIN [Concomitant]
  4. ISOSORBIDE (ISOSORBIDE NOS) [Concomitant]
  5. LISINOPRIL [Concomitant]
  6. PREDNISONE TAB [Concomitant]
  7. ZOCOR [Concomitant]
  8. ADVAIR DISKUS 100/50 [Concomitant]
  9. XALATAN [Concomitant]
  10. CARTIA XT [Concomitant]
  11. ASCORBIC ACID [Concomitant]
  12. TYLENOL (CAPLET) [Concomitant]
  13. SPIRAPRIL (SPIRAPRIL HYDROCHLORIDE) [Concomitant]

REACTIONS (27)
  - ABDOMINAL PAIN UPPER [None]
  - BACK PAIN [None]
  - BLOOD PRESSURE INCREASED [None]
  - CARPAL TUNNEL SYNDROME [None]
  - DRUG INEFFECTIVE [None]
  - GALLBLADDER POLYP [None]
  - GASTROOESOPHAGEAL REFLUX DISEASE [None]
  - HYPERLIPIDAEMIA [None]
  - HYPOTHYROIDISM [None]
  - IRON DEFICIENCY ANAEMIA [None]
  - LUNG NEOPLASM [None]
  - MALNUTRITION [None]
  - NAUSEA [None]
  - OCCULT BLOOD POSITIVE [None]
  - OESOPHAGEAL ULCER [None]
  - OSTEOPENIA [None]
  - PLEURAL EFFUSION [None]
  - PULSE ABSENT [None]
  - REFUSAL OF TREATMENT BY PATIENT [None]
  - RESPIRATORY FAILURE [None]
  - RHINITIS ALLERGIC [None]
  - RIB FRACTURE [None]
  - SPINAL OSTEOARTHRITIS [None]
  - SPONDYLOLISTHESIS [None]
  - UMBILICAL HERNIA [None]
  - URINARY TRACT INFECTION [None]
  - WHITE BLOOD CELL COUNT INCREASED [None]
